FAERS Safety Report 8488263-7 (Version None)
Quarter: 2012Q3

REPORT INFORMATION
  Report Type: 
  Country: None (occurrence: None)
  Receive Date: 20120705
  Receipt Date: 20120704
  Transmission Date: 20120928
  Serious: Yes (Other)
  Sender: FDA-Public Use
  Company Number: US-PFIZER INC-2011US-46175

PATIENT
  Sex: Female

DRUGS (2)
  1. CALAN [Suspect]
     Dosage: 240 MG, 1X/DAY
     Route: 065
  2. CALAN [Suspect]
     Dosage: 120 MG, 2X/DAY
     Route: 065

REACTIONS (3)
  - DRUG DISPENSING ERROR [None]
  - PRESYNCOPE [None]
  - MEDICATION ERROR [None]
